FAERS Safety Report 9057749 (Version 1)
Quarter: 2013Q1

REPORT INFORMATION
  Report Type: Spontaneous
  Country: US (occurrence: None)
  Receive Date: 20130204
  Receipt Date: 20130204
  Transmission Date: 20140127
  Serious: Yes (Other)
  Sender: FDA-Public Use
  Company Number: None

PATIENT
  Sex: Female
  Weight: 57 kg

DRUGS (1)
  1. NEUTROGENA NATURALS PURIFYING FACIAL CLEANSER [Suspect]
     Dosage: 1 TSP, 1X, TOPICAL
     Dates: start: 20121219, end: 20121219

REACTIONS (6)
  - Swelling face [None]
  - Rash erythematous [None]
  - Pruritus [None]
  - Skin irritation [None]
  - Chest discomfort [None]
  - Dyspnoea [None]
